FAERS Safety Report 4363405-3 (Version None)
Quarter: 2004Q2

REPORT INFORMATION
  Report Type: 
  Country: None (occurrence: None)
  Receive Date: 20040517
  Receipt Date: 20040308
  Transmission Date: 20050107
  Serious: No
  Sender: FDA-Public Use
  Company Number: S04-USA-01571-01

PATIENT
  Age: 86 Year
  Sex: Female

DRUGS (10)
  1. NAMENDA [Suspect]
     Indication: DEMENTIA ALZHEIMER'S TYPE
     Dosage: 5 MG BID PO
     Route: 048
     Dates: start: 20040306
  2. NAMENDA [Suspect]
     Indication: DEMENTIA ALZHEIMER'S TYPE
     Dosage: 5 MG QD PO
     Route: 048
     Dates: start: 20040228, end: 20040305
  3. TOPROL-XL [Concomitant]
  4. WARFARIN SODIUM [Concomitant]
  5. LASIX [Concomitant]
  6. MICARDIS (TELMISARTAN) [Concomitant]
  7. NITRGLYCERIN TRANSDERMAL SYSTEM [Concomitant]
  8. ALBUTEROL [Concomitant]
  9. ZOLOFT [Concomitant]
  10. REMINYL [Concomitant]

REACTIONS (1)
  - HALLUCINATION [None]
